FAERS Safety Report 18649704 (Version 1)
Quarter: 2020Q4

REPORT INFORMATION
  Report Type: Spontaneous
  Country: GB (occurrence: GB)
  Receive Date: 20201222
  Receipt Date: 20201222
  Transmission Date: 20210114
  Serious: Yes (Hospitalization, Other)
  Sender: FDA-Public Use
  Company Number: GB-TEVA-2020-GB-1859546

PATIENT
  Age: 63 Year
  Sex: Female
  Weight: 62.3 kg

DRUGS (5)
  1. ADCAL-D3 [Concomitant]
     Active Substance: CALCIUM CARBONATE\CHOLECALCIFEROL
  2. LAMOTRIGINE. [Concomitant]
     Active Substance: LAMOTRIGINE
  3. LANSOPRAZOLE. [Concomitant]
     Active Substance: LANSOPRAZOLE
  4. LATANOPROST. [Concomitant]
     Active Substance: LATANOPROST
  5. URSODEOXYCHOLIC ACID [Suspect]
     Active Substance: URSODIOL
     Indication: CHOLELITHIASIS
     Route: 048
     Dates: start: 20201118, end: 20201122

REACTIONS (3)
  - Headache [Unknown]
  - Rash [Unknown]
  - Musculoskeletal chest pain [Unknown]

NARRATIVE: CASE EVENT DATE: 20201119
